FAERS Safety Report 14664527 (Version 4)
Quarter: 2018Q2

REPORT INFORMATION
  Report Type: Spontaneous
  Country: IN (occurrence: IN)
  Receive Date: 20180321
  Receipt Date: 20180516
  Transmission Date: 20180711
  Serious: Yes (Other)
  Sender: FDA-Public Use
  Company Number: IN-PFIZER INC-2018112960

PATIENT
  Age: 70 Year
  Sex: Female

DRUGS (3)
  1. SHELCAL [Concomitant]
     Dosage: UNK, ONCE DAILY
  2. AROMASIN [Suspect]
     Active Substance: EXEMESTANE
     Indication: BREAST CANCER METASTATIC
     Dosage: 25 MG, DAILY
     Route: 048
     Dates: start: 20170718
  3. ENDACE [Suspect]
     Active Substance: MEGESTROL ACETATE
     Indication: APPETITE DISORDER
     Dosage: 160 MG, ONCE DAILY

REACTIONS (2)
  - Off label use [Unknown]
  - Pneumonitis [Recovered/Resolved]
